FAERS Safety Report 4787944-6 (Version None)
Quarter: 2005Q3

REPORT INFORMATION
  Report Type: 
  Country: None (occurrence: None)
  Receive Date: 20050926
  Receipt Date: 20050623
  Transmission Date: 20060218
  Serious: Yes (Hospitalization)
  Sender: FDA-Public Use
  Company Number: 215607

PATIENT
  Age: 69 Year
  Sex: Male
  Weight: 106.1 kg

DRUGS (5)
  1. AVASTIN [Suspect]
     Indication: METASTATIC RENAL CELL CARCINOMA
     Dosage: 1000 MG, QW2, INTRAVENOUS
     Route: 042
     Dates: start: 20040901
  2. ZOMETA [Concomitant]
  3. COMBIVENT INHALER (ALBUTEROL, ALBUTEROL SULFATE, IPRATROPIUM BROMIDE) [Concomitant]
  4. COUMADIN [Concomitant]
  5. PERCOCET [Concomitant]

REACTIONS (1)
  - ACUTE MYOCARDIAL INFARCTION [None]
